FAERS Safety Report 4549664-2 (Version None)
Quarter: 2005Q1

REPORT INFORMATION
  Report Type: 
  Country: None (occurrence: None)
  Receive Date: 20050111
  Receipt Date: 20050105
  Transmission Date: 20050727
  Serious: Yes (Hospitalization)
  Sender: FDA-Public Use
  Company Number: FR-GLAXOSMITHKLINE-B0363796A

PATIENT
  Age: 3 Day
  Sex: Male
  Weight: 2.9 kg

DRUGS (3)
  1. RETROVIR [Suspect]
     Indication: ANTIVIRAL PROPHYLAXIS
     Dosage: 1.2ML TWICE PER DAY
     Route: 048
     Dates: start: 20040317, end: 20040417
  2. COMBIVIR [Suspect]
     Indication: HIV INFECTION
     Dates: start: 20030924, end: 20040317
  3. VIRACEPT [Suspect]
     Indication: HIV INFECTION
     Dates: start: 20030924, end: 20040317

REACTIONS (8)
  - ABDOMINAL DISTENSION [None]
  - ABDOMINAL PAIN [None]
  - BLOOD CREATINE PHOSPHOKINASE INCREASED [None]
  - BLOOD LACTIC ACID INCREASED [None]
  - DRUG EXPOSURE DURING PREGNANCY [None]
  - LIPASE INCREASED [None]
  - MITOCHONDRIAL CYTOPATHY [None]
  - NEUTROPENIA [None]
